FAERS Safety Report 16573233 (Version 1)
Quarter: 2019Q3

REPORT INFORMATION
  Report Type: Other
  Country: LK (occurrence: LK)
  Receive Date: 20190715
  Receipt Date: 20190715
  Transmission Date: 20191004
  Serious: Yes (Life-Threatening, Hospitalization)
  Sender: FDA-Public Use
  Company Number: LK-NOSTRUM LABORATORIES, INC.-2070829

PATIENT
  Age: 7 Year
  Sex: Female

DRUGS (1)
  1. DAPSONE. [Suspect]
     Active Substance: DAPSONE
     Indication: LEPROSY
     Route: 048

REACTIONS (6)
  - Abscess [Recovered/Resolved]
  - Respiratory distress [Recovered/Resolved]
  - Agranulocytosis [Recovered/Resolved]
  - Cellulitis [Recovered/Resolved]
  - Mucosal inflammation [Recovered/Resolved]
  - Dysphagia [Recovered/Resolved]
